FAERS Safety Report 23054065 (Version 1)
Quarter: 2023Q4

REPORT INFORMATION
  Report Type: Spontaneous
  Country: US (occurrence: US)
  Receive Date: 20231011
  Receipt Date: 20231011
  Transmission Date: 20240110
  Serious: No
  Sender: FDA-Public Use
  Company Number: US-BAYER-2023A128322

PATIENT
  Age: 28 Year
  Sex: Female

DRUGS (2)
  1. MIRENA [Suspect]
     Active Substance: LEVONORGESTREL
     Indication: Vaginal haemorrhage
     Dosage: 20?G/DAY
     Route: 015
     Dates: start: 202303, end: 20230822
  2. MIRENA [Suspect]
     Active Substance: LEVONORGESTREL
     Indication: Abnormal uterine bleeding

REACTIONS (4)
  - Genital haemorrhage [None]
  - Device expulsion [Recovered/Resolved]
  - Off label use [None]
  - Device use issue [None]

NARRATIVE: CASE EVENT DATE: 20230101
